FAERS Safety Report 6404135-3 (Version None)
Quarter: 2009Q4

REPORT INFORMATION
  Report Type: 
  Country: None (occurrence: None)
  Receive Date: 20091016
  Receipt Date: 20090924
  Transmission Date: 20100525
  Serious: No
  Sender: FDA-Public Use
  Company Number: US-ALEXION-A200900781

PATIENT
  Sex: Female

DRUGS (13)
  1. SOLIRIS [Suspect]
     Indication: PAROXYSMAL NOCTURNAL HAEMOGLOBINURIA
     Dosage: 600 MG, QW
     Route: 042
     Dates: start: 20070918, end: 20071009
  2. SOLIRIS [Suspect]
     Dosage: 900 MG, Q2W
     Route: 042
     Dates: start: 20071016, end: 20090101
  3. SOLIRIS [Suspect]
     Dosage: 700 MG, Q2W
     Route: 042
     Dates: start: 20090101, end: 20090101
  4. SOLIRIS [Suspect]
     Dosage: 900 MG, Q2W
     Route: 042
     Dates: start: 20090101
  5. FOLIC ACID [Concomitant]
  6. MORPHINE [Concomitant]
  7. VALIUM [Concomitant]
  8. AMBIEN [Concomitant]
  9. ZOFRAN [Concomitant]
  10. PHENERGAN HCL [Concomitant]
  11. LEXAPRO [Concomitant]
  12. NEUPOGEN [Concomitant]
  13. SEPTRA [Suspect]

REACTIONS (1)
  - DEVICE RELATED INFECTION [None]
